FAERS Safety Report 5486597-1 (Version None)
Quarter: 2007Q3

REPORT INFORMATION
  Report Type: 
  Country: None (occurrence: None)
  Receive Date: 20070920
  Receipt Date: 20070424
  Transmission Date: 20080115
  Serious: Yes (Hospitalization)
  Sender: FDA-Public Use
  Company Number: 07P-163-0366203-00

PATIENT
  Age: 50 Year
  Sex: Male
  Weight: 81.6475 kg

DRUGS (2)
  1. DEPAKOTE ER [Suspect]
     Indication: DEPRESSION
     Dosage: PER ORAL
     Route: 048
     Dates: start: 20050201, end: 20070201
  2. ABILIFY [Suspect]
     Dosage: PER ORAL
     Route: 048
     Dates: start: 20060901, end: 20070201

REACTIONS (2)
  - DRUG INTERACTION [None]
  - PANCREATITIS [None]
